FAERS Safety Report 13095294 (Version 1)
Quarter: 2017Q1

REPORT INFORMATION
  Report Type: Spontaneous
  Country: US (occurrence: US)
  Receive Date: 20170107
  Receipt Date: 20170107
  Transmission Date: 20170428
  Serious: No
  Sender: FDA-Public Use
  Company Number: US-DRREDDYS-DRL/USA/16/0080036

PATIENT
  Age: 57 Year
  Sex: Female

DRUGS (4)
  1. HABITROL [Suspect]
     Active Substance: NICOTINE
     Route: 061
  2. HABITROL [Suspect]
     Active Substance: NICOTINE
     Indication: SMOKING CESSATION THERAPY
     Route: 061
  3. HABITROL [Suspect]
     Active Substance: NICOTINE
     Route: 061
  4. HABITROL [Suspect]
     Active Substance: NICOTINE
     Route: 061

REACTIONS (5)
  - Treatment noncompliance [Unknown]
  - Drug ineffective [Unknown]
  - Inappropriate schedule of drug administration [Unknown]
  - Overdose [Unknown]
  - Product quality issue [Unknown]
